FAERS Safety Report 5749335-0 (Version None)
Quarter: 2008Q2

REPORT INFORMATION
  Report Type: 
  Country: None (occurrence: None)
  Receive Date: 20080527
  Receipt Date: 20080527
  Transmission Date: 20081010
  Serious: No
  Sender: FDA-Public Use
  Company Number: None

PATIENT
  Sex: Male
  Weight: 122 kg

DRUGS (1)
  1. HEPARIN SODIUM [Suspect]
     Indication: FIBRIN
     Dosage: 2 CC PRN INTRAPERITONEAL
     Route: 033
     Dates: start: 20080201, end: 20080330

REACTIONS (3)
  - CHEST PAIN [None]
  - PHARMACEUTICAL PRODUCT COMPLAINT [None]
  - RASH [None]
